FAERS Safety Report 7107957-9 (Version None)
Quarter: 2010Q4

REPORT INFORMATION
  Report Type: 
  Country: None (occurrence: None)
  Receive Date: 20101117
  Receipt Date: 20101108
  Transmission Date: 20110411
  Serious: Yes (Hospitalization, Other)
  Sender: FDA-Public Use
  Company Number: US-ASTRAZENECA-2010SE42027

PATIENT
  Age: 67 Year
  Sex: Female
  Weight: 69.8 kg

DRUGS (4)
  1. CRESTOR [Suspect]
     Indication: HYPERLIPIDAEMIA
     Route: 048
     Dates: start: 20100318, end: 20100701
  2. ESTRING [Suspect]
     Indication: ATROPHIC VULVOVAGINITIS
     Route: 065
     Dates: start: 20100615
  3. PREMARIN [Suspect]
     Indication: ATROPHIC VULVOVAGINITIS
     Route: 048
  4. SYNTHROID [Concomitant]
     Route: 065

REACTIONS (5)
  - BLOOD GLUCOSE INCREASED [None]
  - BREAST LUMP REMOVAL [None]
  - MEMORY IMPAIRMENT [None]
  - SPEECH DISORDER [None]
  - VISION BLURRED [None]
